FAERS Safety Report 10461771 (Version 2)
Quarter: 2014Q4

REPORT INFORMATION
  Report Type: Spontaneous
  Country: JP (occurrence: JP)
  Receive Date: 20140918
  Receipt Date: 20141105
  Transmission Date: 20150528
  Serious: Yes (Other)
  Sender: FDA-Public Use
  Company Number: JP-PFIZER INC-2014257778

PATIENT
  Age: 43 Year
  Sex: Male

DRUGS (3)
  1. AMIODARONE HYDROCHLORIDE. [Suspect]
     Active Substance: AMIODARONE HYDROCHLORIDE
     Indication: VENTRICULAR TACHYCARDIA
  2. AMIODARONE HYDROCHLORIDE. [Suspect]
     Active Substance: AMIODARONE HYDROCHLORIDE
     Indication: HYPERTROPHIC CARDIOMYOPATHY
     Dosage: 100 MG, UNK
     Route: 048
     Dates: start: 2007
  3. PREDNISOLONE. [Suspect]
     Active Substance: PREDNISOLONE
     Indication: HYPERTHYROIDISM
     Dosage: 30 MG, DAILY
     Route: 065

REACTIONS (2)
  - Hyperthyroidism [Recovered/Resolved]
  - Diabetes mellitus [Recovered/Resolved]

NARRATIVE: CASE EVENT DATE: 201201
